FAERS Safety Report 22361074 (Version 3)
Quarter: 2025Q1

REPORT INFORMATION
  Report Type: Spontaneous
  Country: US (occurrence: US)
  Receive Date: 20230524
  Receipt Date: 20250310
  Transmission Date: 20250409
  Serious: Yes (Death, Other)
  Sender: PFIZER
  Company Number: US-PFIZER INC-202300199843

PATIENT
  Age: 82 Year
  Sex: Male
  Weight: 72.109 kg

DRUGS (1)
  1. VYNDAMAX [Suspect]
     Active Substance: TAFAMIDIS
     Indication: Amyloidosis
     Dosage: 61 MG, 1X/DAY
     Dates: start: 20191210, end: 20250303

REACTIONS (2)
  - Death [Fatal]
  - Auditory disorder [Unknown]

NARRATIVE: CASE EVENT DATE: 20250303
